FAERS Safety Report 24248783 (Version 1)
Quarter: 2024Q3

REPORT INFORMATION
  Report Type: Spontaneous
  Country: CN (occurrence: CN)
  Receive Date: 20240826
  Receipt Date: 20240826
  Transmission Date: 20241016
  Serious: Yes (Hospitalization)
  Sender: CHEPLAPHARM
  Company Number: CN-CHEPLA-2024010873

PATIENT
  Sex: Female

DRUGS (2)
  1. CAPECITABINE [Suspect]
     Active Substance: CAPECITABINE
     Indication: Adenocarcinoma of colon
     Dosage: SECOND CHEMOTHERAPY, BID, 14 DAYS, APPROVAL NO. GYZZ H20073024, BID?DAILY DOSE: 2 GRAM
     Route: 048
     Dates: start: 20240717, end: 20240730
  2. OXALIPLATIN [Suspect]
     Active Substance: OXALIPLATIN
     Indication: Adenocarcinoma of colon
     Dosage: ON THE FIRST DAY, APPROVAL NO. GYZZ H20213060
     Route: 042
     Dates: start: 20240716, end: 20240716

REACTIONS (3)
  - Myelosuppression [Recovering/Resolving]
  - Decreased appetite [Recovering/Resolving]
  - Petechiae [Recovered/Resolved]

NARRATIVE: CASE EVENT DATE: 20240701
